FAERS Safety Report 11692275 (Version 39)
Quarter: 2020Q4

REPORT INFORMATION
  Report Type: Other
  Country: CA (occurrence: CA)
  Receive Date: 20151103
  Receipt Date: 20201210
  Transmission Date: 20210113
  Serious: Yes (Life-Threatening, Hospitalization, Other)
  Sender: FDA-Public Use
  Company Number: CA-ROCHE-1653795

PATIENT
  Age: 45 Year
  Sex: Female
  Weight: 90 kg

DRUGS (13)
  1. ACTEMRA [Suspect]
     Active Substance: TOCILIZUMAB
     Route: 042
     Dates: start: 20180412, end: 20190212
  2. LOSEC [Concomitant]
     Active Substance: OMEPRAZOLE
     Indication: PRODUCT USED FOR UNKNOWN INDICATION
  3. ACTEMRA [Suspect]
     Active Substance: TOCILIZUMAB
     Route: 042
     Dates: start: 20190509
  4. METHOTREXATE. [Concomitant]
     Active Substance: METHOTREXATE
     Indication: PRODUCT USED FOR UNKNOWN INDICATION
  5. ACTEMRA [Suspect]
     Active Substance: TOCILIZUMAB
     Indication: RHEUMATOID ARTHRITIS
     Dosage: ADDITIONAL BATCH/LOT FROM 04-OCT-2016: B2044 (30-NOV-2017)
     Route: 042
     Dates: start: 20150904, end: 20161010
  6. ACTEMRA [Suspect]
     Active Substance: TOCILIZUMAB
     Dosage: NO PIRS RECEIVED BETWEEN 22/DEC/2016 TO 05/JUL/2018. DOSAGE NOTED ACCORDING TO PRESCRIPTION ENROLMEN
     Route: 042
     Dates: start: 20161101, end: 20170216
  7. ACTEMRA [Suspect]
     Active Substance: TOCILIZUMAB
     Dosage: NO PIRS RECEIVED BETWEEN 22/DEC/2016 TO 05/JUL/2018. DOSAGE NOTED ACCORDING TO PRESCRIPTION ENROLMEN
     Route: 042
     Dates: start: 20170316, end: 20180315
  8. CELEBREX [Concomitant]
     Active Substance: CELECOXIB
     Indication: PRODUCT USED FOR UNKNOWN INDICATION
  9. ACTEMRA [Suspect]
     Active Substance: TOCILIZUMAB
     Route: 042
     Dates: start: 20190314, end: 20190314
  10. CIPROLAX [Concomitant]
     Indication: PRODUCT USED FOR UNKNOWN INDICATION
  11. NUVARING [Concomitant]
     Active Substance: ETHINYL ESTRADIOL\ETONOGESTREL
     Indication: PRODUCT USED FOR UNKNOWN INDICATION
  12. HCTZ [Concomitant]
     Active Substance: HYDROCHLOROTHIAZIDE
     Indication: PRODUCT USED FOR UNKNOWN INDICATION
  13. ACTEMRA [Suspect]
     Active Substance: TOCILIZUMAB
     Route: 042
     Dates: start: 20190411, end: 20190411

REACTIONS (21)
  - Blood pressure fluctuation [Unknown]
  - Weight increased [Not Recovered/Not Resolved]
  - Rheumatoid arthritis [Not Recovered/Not Resolved]
  - Rheumatoid arthritis [Not Recovered/Not Resolved]
  - Heart rate decreased [Unknown]
  - Blood pressure diastolic abnormal [Unknown]
  - Blood pressure systolic abnormal [Unknown]
  - Arthralgia [Unknown]
  - Eye inflammation [Unknown]
  - Stress at work [Not Recovered/Not Resolved]
  - Weight decreased [Recovering/Resolving]
  - Blood pressure increased [Unknown]
  - Urinary tract infection [Unknown]
  - Arthritis [Unknown]
  - Coronary artery occlusion [Not Recovered/Not Resolved]
  - Cholelithiasis [Not Recovered/Not Resolved]
  - Nephrolithiasis [Unknown]
  - Blood pressure systolic increased [Unknown]
  - Non-cardiac chest pain [Not Recovered/Not Resolved]
  - Underdose [Unknown]
  - Fatigue [Not Recovered/Not Resolved]

NARRATIVE: CASE EVENT DATE: 20151011
